FAERS Safety Report 15182791 (Version 1)
Quarter: 2018Q3

REPORT INFORMATION
  Report Type: Spontaneous
  Country: US (occurrence: US)
  Receive Date: 20180625
  Receipt Date: 20180625
  Transmission Date: 20181010
  Serious: Yes (Other)
  Sender: FDA-Public Use
  Company Number: None

PATIENT
  Age: 54 Year
  Sex: Male
  Weight: 106.59 kg

DRUGS (8)
  1. AMITRIPTYLIN [Concomitant]
     Active Substance: AMITRIPTYLINE
  2. PHENTERMINE. [Concomitant]
     Active Substance: PHENTERMINE
  3. VENTOLIN HFA [Concomitant]
     Active Substance: ALBUTEROL SULFATE
  4. ALBUTEROL SULFATE. [Concomitant]
     Active Substance: ALBUTEROL SULFATE
  5. FLUTICASONE PROPIONATE NASAL SPRAY USP, 50 MCG/SPRAY [Suspect]
     Active Substance: FLUTICASONE PROPIONATE
     Indication: HYPERSENSITIVITY
     Dosage: ?          QUANTITY:1 DF DOSAGE FORM;OTHER FREQUENCY:IN THE MORNING;?
     Dates: start: 20160621, end: 20180621
  6. LOSARTAN. [Concomitant]
     Active Substance: LOSARTAN
  7. CARVEDILOL. [Concomitant]
     Active Substance: CARVEDILOL
  8. ALPRAZALOM [Concomitant]

REACTIONS (4)
  - Nasal discomfort [None]
  - Product use issue [None]
  - Rhinalgia [None]
  - Nasal congestion [None]

NARRATIVE: CASE EVENT DATE: 20180621
